FAERS Safety Report 7278909-3 (Version None)
Quarter: 2011Q1

REPORT INFORMATION
  Report Type: 
  Country: None (occurrence: None)
  Receive Date: 20110207
  Receipt Date: 20110204
  Transmission Date: 20110831
  Serious: Yes (Other)
  Sender: FDA-Public Use
  Company Number: US-ROXANE LABORATORIES, INC.-2011-RO-00143RO

PATIENT

DRUGS (2)
  1. LEVETIRACETAM [Suspect]
     Indication: CONVULSION
  2. KEPPRA [Concomitant]
     Indication: CONVULSION

REACTIONS (1)
  - CONVULSION [None]
